FAERS Safety Report 25005327 (Version 1)
Quarter: 2025Q1

REPORT INFORMATION
  Report Type: Spontaneous
  Country: US (occurrence: US)
  Receive Date: 20250224
  Receipt Date: 20250224
  Transmission Date: 20250408
  Serious: Yes (Life-Threatening, Hospitalization)
  Sender: PFIZER
  Company Number: US-PFIZER INC-202500040351

PATIENT
  Age: 39 Year
  Sex: Female

DRUGS (1)
  1. PALBOCICLIB [Suspect]
     Active Substance: PALBOCICLIB
     Indication: Breast cancer female

REACTIONS (4)
  - Pneumonia [Recovering/Resolving]
  - Influenza [Recovering/Resolving]
  - Acute respiratory failure [Recovering/Resolving]
  - Respiratory symptom [Recovering/Resolving]
